FAERS Safety Report 6892439-X (Version None)
Quarter: 2010Q3

REPORT INFORMATION
  Report Type: 
  Country: None (occurrence: None)
  Receive Date: 20100731
  Receipt Date: 20080529
  Transmission Date: 20110219
  Serious: No
  Sender: FDA-Public Use
  Company Number: US-PFIZER INC-2008042415

PATIENT
  Sex: Male

DRUGS (2)
  1. NEURONTIN [Suspect]
     Dates: start: 20010101
  2. LYRICA [Suspect]
     Indication: NEUROPATHY PERIPHERAL
     Route: 048
     Dates: start: 20080501

REACTIONS (2)
  - PAIN IN EXTREMITY [None]
  - SLEEP DISORDER [None]
